FAERS Safety Report 6346113-9 (Version None)
Quarter: 2009Q3

REPORT INFORMATION
  Report Type: 
  Country: None (occurrence: None)
  Receive Date: 20090909
  Receipt Date: 20090907
  Transmission Date: 20100115
  Serious: Yes (Hospitalization)
  Sender: FDA-Public Use
  Company Number: IT-BRISTOL-MYERS SQUIBB COMPANY-14769731

PATIENT
  Age: 85 Year
  Sex: Female

DRUGS (5)
  1. COAPROVEL TABS 150MG/12.5MG [Suspect]
     Indication: HYPERTENSION
     Dosage: 1 DF= 1 UNIT (10MG+12MG), DURATION: 14 WEEKS AND 2 DAYS.
     Route: 048
     Dates: start: 20090504, end: 20090811
  2. ROCALTROL [Concomitant]
     Indication: BLOOD CALCIUM DECREASED
     Dosage: 1 DF- 1 UNIT; DURATION 7YRS 31WK 6DAYS;RESTART ON 17AUG09
     Route: 048
     Dates: start: 20020101, end: 20090811
  3. CALCIUM CARBONATE + CHOLECALCIFEROL [Concomitant]
     Indication: BLOOD CALCIUM DECREASED
     Dosage: 1 DF- 1 UNIT; DURATION 7YRS 31WK 6DAYS;RESTART ON 17AUG09
     Route: 048
     Dates: start: 20020101, end: 20090811
  4. EUTIROX [Concomitant]
     Indication: POST PROCEDURAL HYPOTHYROIDISM
     Dosage: 1 DF- 1 UNIT (75MCG/D); DURATION 7YRS 31WK 6DAYS
     Route: 048
     Dates: start: 20020101, end: 20090811
  5. ZANEDIP [Concomitant]
     Indication: HYPERTENSION
     Dosage: 1 DF- 1 UNIT;
     Route: 048

REACTIONS (1)
  - HYPERCALCAEMIA [None]
